FAERS Safety Report 8760361 (Version 5)
Quarter: 2013Q4

REPORT INFORMATION
  Report Type: Spontaneous
  Country: US (occurrence: None)
  Receive Date: 20120822
  Receipt Date: 20131004
  Transmission Date: 20140711
  Serious: Yes (Hospitalization, Other)
  Sender: FDA-Public Use
  Company Number: 2012-001931

PATIENT
  Age: 66 Year
  Sex: Female

DRUGS (10)
  1. ACTONEL [Suspect]
     Route: 048
     Dates: start: 20010629, end: 200207
  2. FOSAMAX (ALENDRONATE SODIUM) [Suspect]
     Route: 048
     Dates: start: 20000516, end: 200107
  3. ALENDRONATE SODIUM [Suspect]
     Route: 048
     Dates: start: 200807, end: 201006
  4. PREDNISONE [Concomitant]
  5. LEVOXYL [Concomitant]
  6. NAQUA [Concomitant]
  7. MIDAMOR (AMILORIDE HYDROCHLORIDE) [Concomitant]
  8. HYDROCHLOROTHIAZIDE (HYDROCHLOROTHIAZIDE) [Concomitant]
  9. ATENOLOL (ATENOLOL) [Concomitant]
  10. KLOR-CON M10 (POTASSIUM CHLORIDE) [Concomitant]

REACTIONS (8)
  - Stress fracture [None]
  - Femur fracture [None]
  - Pain in extremity [None]
  - Gait disturbance [None]
  - Skeletal injury [None]
  - Pain [None]
  - Medical device pain [None]
  - Myalgia [None]
